FAERS Safety Report 15875940 (Version 6)
Quarter: 2019Q4

REPORT INFORMATION
  Report Type: Spontaneous
  Country: JP (occurrence: JP)
  Receive Date: 20190126
  Receipt Date: 20191209
  Transmission Date: 20200122
  Serious: Yes (Hospitalization, Other)
  Sender: FDA-Public Use
  Company Number: PHJP2019JP000966

PATIENT
  Age: 59 Year
  Sex: Female
  Weight: 38 kg

DRUGS (8)
  1. GILENYA [Suspect]
     Active Substance: FINGOLIMOD HYDROCHLORIDE
     Indication: MULTIPLE SCLEROSIS
     Dosage: 0.5 MG, QOD
     Route: 048
     Dates: start: 20120514, end: 20181215
  2. GILENYA [Suspect]
     Active Substance: FINGOLIMOD HYDROCHLORIDE
     Dosage: 0.5 MG, EVERY 3 DAYS
     Route: 048
     Dates: start: 20181225, end: 20190121
  3. VALSARTAN. [Concomitant]
     Active Substance: VALSARTAN
     Indication: HYPERTENSION
     Dosage: 80 MG, QD
     Route: 048
  4. LIORESAL [Concomitant]
     Active Substance: BACLOFEN
     Indication: MUSCLE SPASMS
     Dosage: 5 MG, TID
     Route: 048
  5. METHYCOBAL [Concomitant]
     Active Substance: METHYLCOBALAMIN
     Indication: HYPOAESTHESIA
     Dosage: 500 MG, TID
     Route: 048
  6. KETAS [Concomitant]
     Active Substance: IBUDILAST
     Indication: DIZZINESS
     Dosage: 10 MG, TID
     Route: 048
  7. GILENYA [Suspect]
     Active Substance: FINGOLIMOD HYDROCHLORIDE
     Dosage: 0.5 MG, EVERY 3 DAYS
     Route: 048
     Dates: start: 20190322
  8. URSO [Concomitant]
     Active Substance: URSODIOL
     Indication: LIVER DISORDER
     Dosage: 100 MG, QD
     Route: 048

REACTIONS (8)
  - Central nervous system lesion [Unknown]
  - Multiple sclerosis relapse [Recovering/Resolving]
  - Dyskinesia [Unknown]
  - Agranulocytosis [Recovered/Resolved]
  - Hypoaesthesia [Unknown]
  - Prescribed underdose [Unknown]
  - Neutrophil count decreased [Recovered/Resolved]
  - Pyrexia [Recovering/Resolving]

NARRATIVE: CASE EVENT DATE: 20181215
